FAERS Safety Report 25378751 (Version 1)
Quarter: 2025Q2

REPORT INFORMATION
  Report Type: Spontaneous
  Country: GB (occurrence: GB)
  Receive Date: 20250530
  Receipt Date: 20250530
  Transmission Date: 20250716
  Serious: Yes (Other)
  Sender: MYLAN
  Company Number: GB-MYLANLABS-2025M1044767

PATIENT
  Age: 52 Year
  Sex: Male

DRUGS (12)
  1. CITALOPRAM [Suspect]
     Active Substance: CITALOPRAM
     Indication: Depression
     Dosage: 40 MILLIGRAM, QD
  2. DULOXETINE [Suspect]
     Active Substance: DULOXETINE
     Indication: Depression
     Dosage: 60 MILLIGRAM, BID
  3. RIVASTIGMINE [Suspect]
     Active Substance: RIVASTIGMINE
     Indication: Hallucination, visual
  4. AMLODIPINE [Concomitant]
     Active Substance: AMLODIPINE BESYLATE
     Indication: Prophylaxis
     Dosage: 5 MILLIGRAM, QD
  5. ATORVASTATIN [Concomitant]
     Active Substance: ATORVASTATIN
     Indication: Prophylaxis
     Dosage: 20 MILLIGRAM, QD
  6. ASPIRIN [Concomitant]
     Active Substance: ASPIRIN
     Indication: Prophylaxis
     Dosage: 75 MILLIGRAM, QD
  7. OLANZAPINE [Concomitant]
     Active Substance: OLANZAPINE
     Indication: Hallucination, visual
     Dosage: 5 MILLIGRAM, BID
  8. OLANZAPINE [Concomitant]
     Active Substance: OLANZAPINE
     Indication: Anxiety
  9. LAMOTRIGINE [Concomitant]
     Active Substance: LAMOTRIGINE
     Indication: Central pain syndrome
     Dosage: 400 MILLIGRAM, QD
  10. AMITRIPTYLINE [Concomitant]
     Active Substance: AMITRIPTYLINE
     Indication: Central pain syndrome
  11. AMITRIPTYLINE [Concomitant]
     Active Substance: AMITRIPTYLINE
  12. QUETIAPINE [Concomitant]
     Active Substance: QUETIAPINE
     Indication: Hallucination, visual
     Dosage: 150 MILLIGRAM, BID

REACTIONS (2)
  - Drug ineffective [Unknown]
  - Off label use [Unknown]
